FAERS Safety Report 4343675-8 (Version None)
Quarter: 2004Q2

REPORT INFORMATION
  Report Type: 
  Country: None (occurrence: None)
  Receive Date: 20040422
  Receipt Date: 20040219
  Transmission Date: 20050107
  Serious: Yes (Other)
  Sender: FDA-Public Use
  Company Number: 200410672JP

PATIENT
  Age: 56 Year
  Sex: Male

DRUGS (2)
  1. AMARYL [Suspect]
     Route: 048
  2. ACTOS [Concomitant]
     Route: 048

REACTIONS (3)
  - LYMPHOCYTE PERCENTAGE DECREASED [None]
  - NEUTROPHIL PERCENTAGE DECREASED [None]
  - WHITE BLOOD CELL COUNT INCREASED [None]
